FAERS Safety Report 25418378 (Version 1)
Quarter: 2025Q2

REPORT INFORMATION
  Report Type: Spontaneous
  Country: US (occurrence: US)
  Receive Date: 20250610
  Receipt Date: 20250610
  Transmission Date: 20250717
  Serious: Yes (Hospitalization, Other)
  Sender: BAYER HEALTHCARE LLC
  Company Number: US-BAYER-2025A072147

PATIENT
  Age: 65 Year
  Sex: Female
  Weight: 74.8 kg

DRUGS (42)
  1. CLARITIN [Suspect]
     Active Substance: LORATADINE
     Dosage: 10 MG, QD
     Route: 048
  2. TREPROSTINIL SODIUM [Suspect]
     Active Substance: TREPROSTINIL SODIUM
     Indication: Pulmonary hypertension
     Route: 058
     Dates: start: 20250509
  3. NUCALA [Concomitant]
     Active Substance: MEPOLIZUMAB
  4. ACETAMINOPHEN [Concomitant]
     Active Substance: ACETAMINOPHEN
  5. AJOVY [Concomitant]
     Active Substance: FREMANEZUMAB-VFRM
  6. ALUMINUM HYDROXIDE [Concomitant]
     Active Substance: ALUMINUM HYDROXIDE
  7. AMBIEN [Concomitant]
     Active Substance: ZOLPIDEM TARTRATE
  8. ASPIRIN [Concomitant]
     Active Substance: ASPIRIN
  9. BENADRYL ALLERGY [Concomitant]
     Active Substance: DIPHENHYDRAMINE HYDROCHLORIDE
  10. CHOLECALCIFEROL [Concomitant]
     Active Substance: CHOLECALCIFEROL
  11. DOCUSATE SODIUM [Concomitant]
     Active Substance: DOCUSATE SODIUM
  12. HYDROCODONE [Concomitant]
     Active Substance: HYDROCODONE
  13. LASIX [Concomitant]
     Active Substance: FUROSEMIDE
  14. HYDROXYCHLOROQUINE [Concomitant]
     Active Substance: HYDROXYCHLOROQUINE
  15. ATROVENT [Concomitant]
     Active Substance: IPRATROPIUM BROMIDE
  16. LEVOTHYROXINE SODIUM [Concomitant]
     Active Substance: LEVOTHYROXINE SODIUM
  17. LOPERAMIDE [Concomitant]
     Active Substance: LOPERAMIDE
  18. MAGNESIUM OXIDE [Concomitant]
     Active Substance: MAGNESIUM OXIDE
  19. MELATONIN [Concomitant]
     Active Substance: MELATONIN
  20. MIDODRINE HYDROCHLORIDE [Concomitant]
     Active Substance: MIDODRINE HYDROCHLORIDE
  21. MIRTAZAPINE [Concomitant]
     Active Substance: MIRTAZAPINE
  22. VITAMINS [Concomitant]
     Active Substance: VITAMINS
  23. PANTOPRAZOLE [Concomitant]
     Active Substance: PANTOPRAZOLE
  24. PREDNISONE [Concomitant]
     Active Substance: PREDNISONE
  25. PREGABALIN [Concomitant]
     Active Substance: PREGABALIN
  26. PRIMIDONE [Concomitant]
     Active Substance: PRIMIDONE
  27. PULMICORT TURBUHALER [Concomitant]
     Active Substance: BUDESONIDE
  28. SPIRIVA RESPIMAT [Concomitant]
     Active Substance: TIOTROPIUM BROMIDE
  29. SYMBICORT [Concomitant]
     Active Substance: BUDESONIDE\FORMOTEROL FUMARATE DIHYDRATE
  30. TRIAMCINOLONE [Concomitant]
     Active Substance: TRIAMCINOLONE
  31. ELIQUIS [Concomitant]
     Active Substance: APIXABAN
  32. LOMOTIL [Concomitant]
     Active Substance: ATROPINE SULFATE\DIPHENOXYLATE HYDROCHLORIDE
  33. EPINEPHRINE [Concomitant]
     Active Substance: EPINEPHRINE
  34. ADVAIR HFA [Concomitant]
     Active Substance: FLUTICASONE PROPIONATE\SALMETEROL XINAFOATE
  35. LASMIDITAN [Concomitant]
     Active Substance: LASMIDITAN
  36. RAMELTEON [Concomitant]
     Active Substance: RAMELTEON
  37. SUDAFED [Concomitant]
     Active Substance: PSEUDOEPHEDRINE HYDROCHLORIDE
  38. VENTOLIN HFA [Concomitant]
     Active Substance: ALBUTEROL SULFATE
  39. CYANOCOBALAMIN\DEXPANTHENOL\NIACINAMIDE\PYRIDOXINE HYDROCHLORIDE\RIBOF [Concomitant]
     Active Substance: CYANOCOBALAMIN\DEXPANTHENOL\NIACINAMIDE\PYRIDOXINE HYDROCHLORIDE\RIBOFLAVIN 5^-PHOSPHATE SODIUM\THIA
  40. ATORVASTATIN [Concomitant]
     Active Substance: ATORVASTATIN
  41. Calcium citrate tetrahydrate;Colecalciferol [Concomitant]
  42. ALUMINUM HYDROXIDE\DIMETHICONE\MAGNESIUM HYDROXIDE [Concomitant]
     Active Substance: ALUMINUM HYDROXIDE\DIMETHICONE\MAGNESIUM HYDROXIDE

REACTIONS (10)
  - Dyspnoea [None]
  - Panic reaction [None]
  - Agitation [None]
  - Hypertension [None]
  - Oedema peripheral [None]
  - Headache [None]
  - Throat irritation [None]
  - Cough [None]
  - Treatment noncompliance [None]
  - Tremor [None]

NARRATIVE: CASE EVENT DATE: 20250501
